FAERS Safety Report 5302719-7 (Version None)
Quarter: 2007Q2

REPORT INFORMATION
  Report Type: 
  Country: None (occurrence: None)
  Receive Date: 20070419
  Receipt Date: 20061031
  Transmission Date: 20071010
  Serious: Yes (Other)
  Sender: FDA-Public Use
  Company Number: US-PFIZER INC-2007023162

PATIENT
  Sex: Female

DRUGS (11)
  1. LIPITOR [Suspect]
  2. XANAX [Concomitant]
     Route: 048
  3. PENTOXIFYLLINE [Concomitant]
  4. HUMIBID DM [Concomitant]
     Indication: INCREASED UPPER AIRWAY SECRETION
     Dosage: TEXT:2-FREQ:AS NEEDED
  5. PLAVIX [Concomitant]
     Dosage: DAILY DOSE:75MG-FREQ:DAILY
  6. LASIX [Concomitant]
     Dosage: DAILY DOSE:20MG-FREQ:DAILY
  7. LORTAB [Concomitant]
     Dosage: DAILY DOSE:10MG-FREQ:DAILY
  8. LANTUS [Concomitant]
     Dosage: TEXT:50-FREQ:DAILY
  9. IMDUR [Concomitant]
     Dosage: DAILY DOSE:30MG-FREQ:DAILY
  10. ZETIA [Concomitant]
     Dosage: DAILY DOSE:10MG-FREQ:DAILY
  11. GLYCERYL TRINITRATE [Concomitant]

REACTIONS (3)
  - CARDIAC DISORDER [None]
  - MYALGIA [None]
  - NEOPLASM MALIGNANT [None]
